FAERS Safety Report 10947243 (Version 1)
Quarter: 2015Q1

REPORT INFORMATION
  Report Type: Spontaneous
  Country: US (occurrence: None)
  Receive Date: 20150218
  Receipt Date: 20150218
  Transmission Date: 20150721
  Serious: No
  Sender: FDA-Public Use
  Company Number: 2015FE00019

PATIENT
  Age: 54 Year
  Sex: Female
  Weight: 66.7 kg

DRUGS (1)
  1. PREPOPIK [Suspect]
     Active Substance: ANHYDROUS CITRIC ACID\MAGNESIUM OXIDE\SODIUM PICOSULFATE
     Indication: BOWEL PREPARATION
     Dosage: FIRST PACKET, ONCE/SINGLE, ORAL
     Route: 048
     Dates: start: 20150105, end: 20150105

REACTIONS (2)
  - Inappropriate schedule of drug administration [None]
  - No adverse event [None]

NARRATIVE: CASE EVENT DATE: 20150105
